FAERS Safety Report 6491512-8 (Version None)
Quarter: 2009Q4

REPORT INFORMATION
  Report Type: 
  Country: None (occurrence: None)
  Receive Date: 20091211
  Receipt Date: 20091208
  Transmission Date: 20100525
  Serious: Yes (Life-Threatening, Hospitalization)
  Sender: FDA-Public Use
  Company Number: TR-BAYER-200941549GPV

PATIENT
  Age: 60 Year
  Sex: Female
  Weight: 60 kg

DRUGS (9)
  1. AVELOX [Suspect]
     Indication: PNEUMONIA
     Route: 042
     Dates: start: 20091124, end: 20091124
  2. IMURAN [Concomitant]
     Dosage: TOTAL DAILY DOSE: 50 MG  UNIT DOSE: 50 MG
     Route: 048
  3. PREDNOL [Concomitant]
     Dosage: TOTAL DAILY DOSE: 48 MG  UNIT DOSE: 16 MG
     Route: 048
  4. METHOTREXAT [Concomitant]
  5. INSULIN [Concomitant]
     Route: 058
  6. VENTOLIN [Concomitant]
     Route: 055
  7. DELIX [Concomitant]
     Route: 048
  8. MONOKET [Concomitant]
     Route: 048
  9. LASIX [Concomitant]
     Route: 048

REACTIONS (4)
  - ACUTE RESPIRATORY FAILURE [None]
  - CARDIAC ARREST [None]
  - CARDIAC FAILURE [None]
  - HYPOTENSION [None]
